FAERS Safety Report 5479757-7 (Version None)
Quarter: 2007Q4

REPORT INFORMATION
  Report Type: 
  Country: None (occurrence: None)
  Receive Date: 20071003
  Receipt Date: 20070927
  Transmission Date: 20080405
  Serious: Yes (Hospitalization)
  Sender: FDA-Public Use
  Company Number: JPI-P-001749

PATIENT
  Age: 29 Year
  Sex: Female
  Weight: 44.9061 kg

DRUGS (7)
  1. XYREM [Suspect]
     Indication: FIBROMYALGIA
     Dosage: 5 MG (2.5 GM, 2 IN 1 D), ORAL; 5 MG (2.5 GM, 2 IN 1 D), ORAL
     Route: 048
     Dates: start: 20070522, end: 20070701
  2. XYREM [Suspect]
     Indication: HYPERSOMNIA
     Dosage: 5 MG (2.5 GM, 2 IN 1 D), ORAL; 5 MG (2.5 GM, 2 IN 1 D), ORAL
     Route: 048
     Dates: start: 20070522, end: 20070701
  3. XYREM [Suspect]
     Indication: FIBROMYALGIA
     Dosage: 5 MG (2.5 GM, 2 IN 1 D), ORAL; 5 MG (2.5 GM, 2 IN 1 D), ORAL
     Route: 048
     Dates: start: 20070723, end: 20070818
  4. XYREM [Suspect]
     Indication: HYPERSOMNIA
     Dosage: 5 MG (2.5 GM, 2 IN 1 D), ORAL; 5 MG (2.5 GM, 2 IN 1 D), ORAL
     Route: 048
     Dates: start: 20070723, end: 20070818
  5. VALPROATE SODIUM [Concomitant]
  6. ESOMEPRAZOLE MAGNESIUM (ESOMEPRAZOLE MAGNESIUM) [Concomitant]
  7. BIRTH CONTROL PILLS (CONTRACEPTIVES NOS) [Concomitant]

REACTIONS (8)
  - DEHYDRATION [None]
  - DIARRHOEA [None]
  - DIZZINESS [None]
  - HYPERPROLACTINAEMIA [None]
  - IMPAIRED GASTRIC EMPTYING [None]
  - MOBILITY DECREASED [None]
  - THINKING ABNORMAL [None]
  - WEIGHT DECREASED [None]
